FAERS Safety Report 10035324 (Version 1)
Quarter: 2014Q1

REPORT INFORMATION
  Report Type: Report from Study
  Country: US (occurrence: US)
  Receive Date: 20140325
  Receipt Date: 20140325
  Transmission Date: 20141002
  Serious: Yes (Hospitalization)
  Sender: FDA-Public Use
  Company Number: US-ACTELION-A-US2014-96271

PATIENT
  Age: 39 Year
  Sex: Female

DRUGS (2)
  1. VELETRI [Suspect]
     Indication: PULMONARY HYPERTENSION
     Dosage: 27 NG/KG, PER MIN
     Route: 042
     Dates: start: 20130318
  2. LETAIRIS [Concomitant]

REACTIONS (2)
  - Cardiomegaly [Unknown]
  - Echocardiogram [Unknown]
